FAERS Safety Report 19692867 (Version 1)
Quarter: 2021Q3

REPORT INFORMATION
  Report Type: Spontaneous
  Country: CN (occurrence: CN)
  Receive Date: 20210812
  Receipt Date: 20210812
  Transmission Date: 20211014
  Serious: Yes (Life-Threatening, Hospitalization)
  Sender: FDA-Public Use
  Company Number: CN-ELI_LILLY_AND_COMPANY-CN202108004717

PATIENT
  Age: 65 Year
  Sex: Male

DRUGS (4)
  1. PEMETREXED. [Suspect]
     Active Substance: PEMETREXED
     Indication: CARCINOID TUMOUR PULMONARY
     Dosage: 0.5 G, SINGLE
     Route: 041
     Dates: start: 20210703, end: 20210703
  2. CAMRELIZUMAB [Suspect]
     Active Substance: CAMRELIZUMAB
     Indication: CARCINOID TUMOUR PULMONARY
     Dosage: 200 MG, SINGLE
     Route: 041
     Dates: start: 20210702, end: 20210702
  3. CISPLATIN. [Suspect]
     Active Substance: CISPLATIN
     Indication: CARCINOID TUMOUR PULMONARY
     Dosage: 60 MG, SINGLE
     Route: 041
     Dates: start: 20210703, end: 20210704
  4. PEMETREXED. [Suspect]
     Active Substance: PEMETREXED
     Dosage: 0.3 G, SINGLE
     Route: 041
     Dates: start: 20210703, end: 20210703

REACTIONS (5)
  - Gastrointestinal haemorrhage [Recovered/Resolved]
  - Off label use [Unknown]
  - Faeces discoloured [Recovered/Resolved]
  - Haemoptysis [Recovered/Resolved]
  - Myelosuppression [Recovered/Resolved]

NARRATIVE: CASE EVENT DATE: 20210703
